FAERS Safety Report 23550613 (Version 1)
Quarter: 2024Q1

REPORT INFORMATION
  Report Type: Spontaneous
  Country: US (occurrence: US)
  Receive Date: 20240221
  Receipt Date: 20240221
  Transmission Date: 20240410
  Serious: Yes (Other)
  Sender: FDA-Public Use
  Company Number: US-FreseniusKabi-FK202402923

PATIENT
  Age: 36 Year
  Sex: Male

DRUGS (1)
  1. METHOTREXATE [Suspect]
     Active Substance: METHOTREXATE
     Indication: Chronic lymphocytic inflammation with pontine perivascular enhancement responsive to steroids

REACTIONS (1)
  - Haemophagocytic lymphohistiocytosis [Recovering/Resolving]
